FAERS Safety Report 5804984-6 (Version None)
Quarter: 2008Q3

REPORT INFORMATION
  Report Type: 
  Country: None (occurrence: None)
  Receive Date: 20080709
  Receipt Date: 20080701
  Transmission Date: 20090109
  Serious: Yes (Other)
  Sender: FDA-Public Use
  Company Number: US-GENENTECH-262420

PATIENT
  Sex: Female
  Weight: 82.086 kg

DRUGS (2)
  1. AVASTIN [Suspect]
     Indication: BREAST CANCER METASTATIC
     Dosage: 1350 MG, Q21D
     Route: 042
     Dates: start: 20080513
  2. TAXOTERE [Suspect]
     Indication: BREAST CANCER
     Dosage: 145 MG, Q3W
     Dates: start: 20080402

REACTIONS (1)
  - SKIN REACTION [None]
